FAERS Safety Report 4677336-2 (Version None)
Quarter: 2005Q2

REPORT INFORMATION
  Report Type: 
  Country: None (occurrence: None)
  Receive Date: 20050525
  Receipt Date: 20050525
  Transmission Date: 20051028
  Serious: Yes (Other)
  Sender: FDA-Public Use
  Company Number: None

PATIENT
  Age: 49 Year
  Sex: Female
  Weight: 61.6892 kg

DRUGS (2)
  1. CRESTOR [Suspect]
     Indication: HYPERLIPIDAEMIA
     Dosage: ONCE A DAY   ORAL
     Route: 048
     Dates: start: 20041201, end: 20050128
  2. CRESTOR [Suspect]
     Dosage: ONCE A DAY   ORAL
     Route: 048
     Dates: start: 20050129, end: 20050401

REACTIONS (3)
  - BLOOD CREATINE PHOSPHOKINASE INCREASED [None]
  - INFLAMMATION [None]
  - LIVER FUNCTION TEST ABNORMAL [None]
